FAERS Safety Report 4402025-9 (Version None)
Quarter: 2004Q3

REPORT INFORMATION
  Report Type: 
  Country: None (occurrence: None)
  Receive Date: 20040719
  Receipt Date: 20040719
  Transmission Date: 20050211
  Serious: Yes (Hospitalization)
  Sender: FDA-Public Use
  Company Number: None

PATIENT
  Age: 60 Year
  Sex: Male
  Weight: 77.1115 kg

DRUGS (1)
  1. CELEBREX [Suspect]
     Indication: CHEMOTHERAPY
     Dosage: 400 MG  PO  ORAL
     Route: 048
     Dates: start: 20040708, end: 20040708

REACTIONS (1)
  - MENINGITIS ASEPTIC [None]
